FAERS Safety Report 4824672-2 (Version None)
Quarter: 2005Q4

REPORT INFORMATION
  Report Type: 
  Country: None (occurrence: None)
  Receive Date: 20051012
  Receipt Date: 20050802
  Transmission Date: 20060501
  Serious: No
  Sender: FDA-Public Use
  Company Number: 2005S1000170

PATIENT
  Age: 48 Year
  Weight: 134.1 kg

DRUGS (12)
  1. CUBICIN [Suspect]
     Indication: OSTEOMYELITIS
     Dosage: 800 MG;Q24H;IV
     Route: 042
     Dates: start: 20050726
  2. CUBICIN [Suspect]
     Indication: STAPHYLOCOCCAL INFECTION
     Dosage: 800 MG;Q24H;IV
     Route: 042
     Dates: start: 20050726
  3. LISINOPRIL [Concomitant]
  4. ATORVASTATIN CALCIUM [Concomitant]
  5. CYCLOBENZAPRINE HCL [Concomitant]
  6. HYDROCODONE [Concomitant]
  7. INSULIN [Concomitant]
  8. IBUPROFEN [Concomitant]
  9. ACETAMINOPHEN [Concomitant]
  10. DOCUSATE SODIUM [Concomitant]
  11. DIPHENHYDRAMINE HCL [Concomitant]
  12. MEDROL [Concomitant]

REACTIONS (3)
  - HYPERSENSITIVITY [None]
  - RASH [None]
  - SWELLING FACE [None]
